APPROVED DRUG PRODUCT: ISONIAZID
Active Ingredient: ISONIAZID
Strength: 100MG
Dosage Form/Route: TABLET;ORAL
Application: A080132 | Product #004
Applicant: PUREPAC PHARMACEUTICAL CO
Approved: Jul 14, 1982 | RLD: No | RS: No | Type: DISCN